FAERS Safety Report 19998200 (Version 1)
Quarter: 2021Q4

REPORT INFORMATION
  Report Type: Spontaneous
  Country: MX (occurrence: MX)
  Receive Date: 20211026
  Receipt Date: 20211026
  Transmission Date: 20220303
  Serious: Yes (Death, Hospitalization)
  Sender: FDA-Public Use
  Company Number: MX-BAYER-2021A237761

PATIENT
  Age: 33 Year
  Sex: Male

DRUGS (1)
  1. LAROTRECTINIB [Suspect]
     Active Substance: LAROTRECTINIB
     Indication: Astrocytoma
     Dosage: 200 MG, QD (2X100 MG)
     Route: 048
     Dates: start: 20210713, end: 202109

REACTIONS (1)
  - Astrocytoma [Fatal]
